FAERS Safety Report 21506567 (Version 1)
Quarter: 2022Q4

REPORT INFORMATION
  Report Type: Spontaneous
  Country: FR (occurrence: FR)
  Receive Date: 20221026
  Receipt Date: 20221026
  Transmission Date: 20230112
  Serious: Yes (Hospitalization, Other)
  Sender: FDA-Public Use
  Company Number: FR-AFSSAPS-PC20221187

PATIENT
  Age: 31 Year
  Sex: Female
  Weight: 77 kg

DRUGS (2)
  1. MELATONIN [Suspect]
     Active Substance: MELATONIN
     Indication: Product used for unknown indication
     Dosage: UNK
     Route: 048
  2. FLURBIPROFEN [Suspect]
     Active Substance: FLURBIPROFEN
     Indication: Dysmenorrhoea
     Dosage: UNK
     Route: 048
     Dates: start: 20211004

REACTIONS (1)
  - Stevens-Johnson syndrome [Recovered/Resolved]

NARRATIVE: CASE EVENT DATE: 20211005
